FAERS Safety Report 5784256-9 (Version None)
Quarter: 2008Q2

REPORT INFORMATION
  Report Type: 
  Country: None (occurrence: None)
  Receive Date: 20080624
  Receipt Date: 20070418
  Transmission Date: 20081010
  Serious: No
  Sender: FDA-Public Use
  Company Number: US-ASTRAZENECA-2007UW07609

PATIENT
  Age: 88 Year
  Sex: Male
  Weight: 68 kg

DRUGS (8)
  1. PULMICORT RESPULES [Suspect]
     Route: 055
  2. DIGOXIN [Concomitant]
  3. ASPIRIN [Concomitant]
  4. CENTRUM SILVER [Concomitant]
  5. CALCIUM [Concomitant]
  6. BLOOD PRESSURE MEDICATION [Concomitant]
  7. ALBUTEROL [Concomitant]
  8. FORMOTEROL FUMARATE [Concomitant]

REACTIONS (2)
  - ILL-DEFINED DISORDER [None]
  - MALAISE [None]
